FAERS Safety Report 7399513-2 (Version None)
Quarter: 2011Q2

REPORT INFORMATION
  Report Type: 
  Country: None (occurrence: None)
  Receive Date: 20110407
  Receipt Date: 20110329
  Transmission Date: 20111010
  Serious: Yes (Hospitalization, Other)
  Sender: FDA-Public Use
  Company Number: US-ELI_LILLY_AND_COMPANY-US200905005375

PATIENT
  Sex: Female

DRUGS (5)
  1. HUMULIN R [Suspect]
     Indication: TYPE 1 DIABETES MELLITUS
     Dosage: UNK, PRN
     Dates: start: 19960101, end: 20050101
  2. GLOBIN INSULIN [Concomitant]
  3. HUMULIN N [Suspect]
     Indication: TYPE 1 DIABETES MELLITUS
     Dosage: 18 U, QD
     Dates: start: 19960101, end: 20050101
  4. HUMALOG [Suspect]
     Indication: TYPE 1 DIABETES MELLITUS
     Dosage: UNK UNK, PRN
     Dates: start: 20090501
  5. LANTUS [Concomitant]
     Dosage: 14 U, QD

REACTIONS (6)
  - RETINAL HAEMORRHAGE [None]
  - BLOOD GLUCOSE INCREASED [None]
  - RETINAL DETACHMENT [None]
  - BLINDNESS UNILATERAL [None]
  - STRESS [None]
  - DEVICE MALFUNCTION [None]
